FAERS Safety Report 12733349 (Version 1)
Quarter: 2016Q3

REPORT INFORMATION
  Report Type: Spontaneous
  Country: US (occurrence: US)
  Receive Date: 20160912
  Receipt Date: 20160912
  Transmission Date: 20161109
  Serious: Yes (Hospitalization)
  Sender: FDA-Public Use
  Company Number: US-VERTEX PHARMACEUTICALS-2016-005247

PATIENT
  Age: 52 Year
  Sex: Female

DRUGS (8)
  1. VITAMIN A [Concomitant]
     Active Substance: VITAMIN A
  2. CAYSTON [Concomitant]
     Active Substance: AZTREONAM
  3. LEVALBUTEROL. [Concomitant]
     Active Substance: LEVALBUTEROL
  4. KALYDECO [Suspect]
     Active Substance: IVACAFTOR
     Indication: CYSTIC FIBROSIS
     Dosage: 150 MG, BID
     Route: 048
     Dates: start: 20150207
  5. FERROUS SULFATE. [Concomitant]
     Active Substance: FERROUS SULFATE
  6. SODIUM CHLORIDE. [Concomitant]
     Active Substance: SODIUM CHLORIDE
  7. AQUADEKS [Concomitant]
     Active Substance: MINERALS\VITAMINS
  8. FLONASE [Concomitant]
     Active Substance: FLUTICASONE PROPIONATE

REACTIONS (1)
  - Cystic fibrosis [Unknown]

NARRATIVE: CASE EVENT DATE: 20160903
